FAERS Safety Report 4820791-5 (Version None)
Quarter: 2005Q4

REPORT INFORMATION
  Report Type: 
  Country: None (occurrence: None)
  Receive Date: 20051104
  Receipt Date: 20051101
  Transmission Date: 20060501
  Serious: Yes (Hospitalization)
  Sender: FDA-Public Use
  Company Number: US-MERCK-0511USA00224

PATIENT
  Age: 62 Year
  Sex: Female

DRUGS (6)
  1. VIOXX [Suspect]
     Indication: ARTHRITIS
     Route: 048
     Dates: start: 20000101
  2. ALBUTEROL [Concomitant]
     Route: 065
  3. ALLEGRA [Concomitant]
     Route: 065
  4. LORATADINE [Concomitant]
     Route: 065
  5. FLONASE [Concomitant]
     Route: 065
  6. [THERAPY UNSPECIFIED] [Concomitant]
     Route: 065

REACTIONS (4)
  - CHEST PAIN [None]
  - DYSPNOEA [None]
  - MITRAL VALVE REPAIR [None]
  - WEIGHT INCREASED [None]
